FAERS Safety Report 18783130 (Version 3)
Quarter: 2023Q4

REPORT INFORMATION
  Report Type: Report from Study
  Country: CA (occurrence: CA)
  Receive Date: 20210125
  Receipt Date: 20231120
  Transmission Date: 20240110
  Serious: Yes (Other)
  Sender: FDA-Public Use
  Company Number: CA-JNJFOC-20210123298

PATIENT
  Age: 44 Year
  Sex: Female
  Weight: 97 kg

DRUGS (1)
  1. STELARA [Suspect]
     Active Substance: USTEKINUMAB
     Indication: Colitis ulcerative
     Dosage: GI ORDERS TO RE-CHALLENGE PATIENT WITH STELARA AND ORDERED ON DATE 09-NOV-2023 TO TRY AGAIN AT A LOW
     Route: 042
     Dates: start: 20210114

REACTIONS (2)
  - Infusion related reaction [Recovering/Resolving]
  - Off label use [Unknown]

NARRATIVE: CASE EVENT DATE: 20210114
